FAERS Safety Report 23312108 (Version 1)
Quarter: 2023Q4

REPORT INFORMATION
  Report Type: Spontaneous
  Country: IT (occurrence: IT)
  Receive Date: 20231219
  Receipt Date: 20231219
  Transmission Date: 20240109
  Serious: Yes (Other)
  Sender: FDA-Public Use
  Company Number: None

PATIENT
  Age: 60 Year

DRUGS (5)
  1. OXALIPLATIN [Suspect]
     Active Substance: OXALIPLATIN
     Indication: Colon cancer stage IV
     Dosage: START OF THERAPY 30/12/2022 - THERAPY EVERY 14 DAYS - XII CYCLE
     Route: 042
     Dates: start: 20230728, end: 20230728
  2. BEVACIZUMAB [Suspect]
     Active Substance: BEVACIZUMAB
     Indication: Colon cancer stage IV
     Dosage: START OF THERAPY 30/12/2022 - THERAPY EVERY 14 DAYS - XII CYCLE
     Route: 042
     Dates: start: 20230728, end: 20230728
  3. ACIDO LEVO FOLINICO [Concomitant]
  4. FLUOROURACIL [Suspect]
     Active Substance: FLUOROURACIL
     Indication: Colon cancer stage IV
     Dosage: START OF THERAPY 30/12/2022 - THERAPY EVERY 14 DAYS - XII CYCLE
     Route: 042
     Dates: start: 20230728, end: 20230728
  5. FLUOROURACIL [Suspect]
     Active Substance: FLUOROURACIL
     Indication: Colon cancer stage IV
     Route: 042
     Dates: start: 20230728, end: 20230728

REACTIONS (5)
  - Thrombocytopenia [Recovering/Resolving]
  - Haemoglobin decreased [Recovering/Resolving]
  - Weight decreased [Recovering/Resolving]
  - Transaminases increased [Recovering/Resolving]
  - Red blood cell count decreased [Recovering/Resolving]

NARRATIVE: CASE EVENT DATE: 20230801
